FAERS Safety Report 21125443 (Version 1)
Quarter: 2022Q3

REPORT INFORMATION
  Report Type: Spontaneous
  Country: US (occurrence: US)
  Receive Date: 20220725
  Receipt Date: 20220725
  Transmission Date: 20221027
  Serious: Yes (Hospitalization)
  Sender: FDA-Public Use
  Company Number: US-PFIZER INC-2019137910

PATIENT
  Age: 72 Year
  Sex: Female
  Weight: 78.47 kg

DRUGS (6)
  1. ARTHROTEC [Suspect]
     Active Substance: DICLOFENAC SODIUM\MISOPROSTOL
     Indication: Pain
     Dosage: 1 DF, 2X/DAY (DICLOFENAC: 75 MG, MISOPROSTOL: 200 MG)
     Route: 048
     Dates: start: 20190323
  2. ARTHROTEC [Suspect]
     Active Substance: DICLOFENAC SODIUM\MISOPROSTOL
     Indication: Osteoarthritis
     Dosage: 1 DF, 2X/DAY [75-200 MG-MCG PER TABLET]
     Route: 048
  3. ARTHROTEC [Suspect]
     Active Substance: DICLOFENAC SODIUM\MISOPROSTOL
     Indication: Arthritis
     Dosage: 1 DF, 2X/DAY [TAKE 1 TABLET BY MOUTH 2 (TWO) TIMES DAILY/ (DICLOFENAC: 75 MG, MISOPROSTOL: 200 MCG)]
     Route: 048
  4. ARTHROTEC [Suspect]
     Active Substance: DICLOFENAC SODIUM\MISOPROSTOL
     Dosage: UNK (75MG/200 MCG)
  5. ARTHROTEC [Suspect]
     Active Substance: DICLOFENAC SODIUM\MISOPROSTOL
     Dosage: UNK (50MG/200 MG)
  6. GABAPENTIN [Concomitant]
     Active Substance: GABAPENTIN
     Indication: Back pain
     Dosage: 300 MG, 3X/DAY
     Route: 048
     Dates: start: 2019

REACTIONS (1)
  - Spinal operation [Unknown]
